FAERS Safety Report 21601861 (Version 2)
Quarter: 2022Q4

REPORT INFORMATION
  Report Type: Report from Study
  Country: US (occurrence: US)
  Receive Date: 20221116
  Receipt Date: 20221201
  Transmission Date: 20230112
  Serious: Yes (Other)
  Sender: FDA-Public Use
  Company Number: US-ABBVIE-4202070

PATIENT
  Age: 18 Year
  Sex: Male
  Weight: 88.4 kg

DRUGS (2)
  1. HUMIRA [Suspect]
     Active Substance: ADALIMUMAB
     Indication: Irritable bowel syndrome
     Dosage: FORM STRENGTH: 40 MG, CITRATE FREE
     Route: 058
     Dates: start: 202106, end: 2022
  2. HUMIRA [Suspect]
     Active Substance: ADALIMUMAB
     Indication: Irritable bowel syndrome
     Dosage: FORM STRENGTH: 40 MILLIGRAM
     Route: 058
     Dates: start: 202210

REACTIONS (8)
  - Fistula [Unknown]
  - Drug ineffective [Unknown]
  - Infected fistula [Recovered/Resolved]
  - Drug level decreased [Unknown]
  - Off label use [Unknown]
  - Irritable bowel syndrome [Recovering/Resolving]
  - Gait inability [Recovered/Resolved]
  - Sitting disability [Recovered/Resolved]

NARRATIVE: CASE EVENT DATE: 20220901
